FAERS Safety Report 8226738-6 (Version None)
Quarter: 2012Q1

REPORT INFORMATION
  Report Type: 
  Country: None (occurrence: None)
  Receive Date: 20120322
  Receipt Date: 20120315
  Transmission Date: 20120608
  Serious: Yes (Hospitalization, Other)
  Sender: FDA-Public Use
  Company Number: US-BAYER-200926474NA

PATIENT
  Age: 41 Year
  Sex: Female
  Weight: 144 kg

DRUGS (3)
  1. ZYRTEC-D 12 HOUR [Concomitant]
     Indication: MULTIPLE ALLERGIES
     Dosage: 5MG/120MG
     Route: 048
     Dates: start: 20060628, end: 20070119
  2. FLUTICASONE FUROATE [Concomitant]
     Dosage: 150 ?G (DAILY DOSE), , NASAL
     Route: 045
     Dates: start: 20061018, end: 20070225
  3. YASMIN [Suspect]
     Indication: CONTRACEPTION
     Route: 048
     Dates: start: 20061201, end: 20070507

REACTIONS (7)
  - FATIGUE [None]
  - DYSPNOEA [None]
  - PAIN IN EXTREMITY [None]
  - OEDEMA PERIPHERAL [None]
  - PULMONARY EMBOLISM [None]
  - PAIN [None]
  - DEEP VEIN THROMBOSIS [None]
